FAERS Safety Report 6517065-3 (Version None)
Quarter: 2009Q4

REPORT INFORMATION
  Report Type: 
  Country: None (occurrence: None)
  Receive Date: 20091223
  Receipt Date: 20091215
  Transmission Date: 20100525
  Serious: Yes (Hospitalization)
  Sender: FDA-Public Use
  Company Number: FR-MEDIMMUNE-MEDI-0004414

PATIENT
  Sex: Male
  Weight: 4 kg

DRUGS (6)
  1. SYNAGIS [Suspect]
     Indication: ANTIVIRAL PROPHYLAXIS
     Route: 030
     Dates: start: 20051006, end: 20051006
  2. SYNAGIS [Suspect]
     Route: 030
     Dates: start: 20051104
  3. SYNAGIS [Suspect]
     Route: 030
     Dates: start: 20051201
  4. SYNAGIS [Suspect]
     Route: 030
     Dates: start: 20060105
  5. SYNAGIS [Suspect]
     Route: 030
     Dates: start: 20060206
  6. SYNAGIS [Suspect]
     Route: 030
     Dates: start: 20060315

REACTIONS (4)
  - BRONCHIOLITIS [None]
  - DIARRHOEA [None]
  - FOOD INTOLERANCE [None]
  - GASTROENTERITIS [None]
